FAERS Safety Report 4932619-3 (Version None)
Quarter: 2006Q1

REPORT INFORMATION
  Report Type: 
  Country: None (occurrence: None)
  Receive Date: 20060301
  Receipt Date: 20060213
  Transmission Date: 20060701
  Serious: Yes (Death, Hospitalization)
  Sender: FDA-Public Use
  Company Number: 2006-0009103

PATIENT
  Age: 44 Year
  Sex: Male

DRUGS (6)
  1. EMTRIVA [Suspect]
     Indication: HIV INFECTION
     Dosage: 200 MG, 1 IN 1 D, ORAL
     Route: 048
     Dates: start: 20051201, end: 20060118
  2. VIREAD [Suspect]
     Indication: HIV INFECTION
     Dosage: 300 MG, 1 IN 1 D, ORAL
     Route: 048
     Dates: start: 20051201, end: 20060118
  3. KALETRA [Concomitant]
  4. TRIZIVIR [Concomitant]
  5. INVIRASE [Concomitant]
  6. NORVIR [Concomitant]

REACTIONS (37)
  - ALPHA 1 GLOBULIN ABNORMAL [None]
  - ANAEMIA MACROCYTIC [None]
  - APHASIA [None]
  - ASTHENIA [None]
  - BALANCE DISORDER [None]
  - BLOOD IMMUNOGLOBULIN G INCREASED [None]
  - BRONCHITIS [None]
  - C-REACTIVE PROTEIN INCREASED [None]
  - CD4 LYMPHOCYTES INCREASED [None]
  - CENTRAL PONTINE MYELINOLYSIS [None]
  - CEREBELLAR SYNDROME [None]
  - CHOLESTASIS [None]
  - CSF CELL COUNT INCREASED [None]
  - CSF PROTEIN INCREASED [None]
  - CSF TEST ABNORMAL [None]
  - CYTOLYTIC HEPATITIS [None]
  - DIPLEGIA [None]
  - DRUG INEFFECTIVE [None]
  - DYSARTHRIA [None]
  - DYSPHAGIA [None]
  - ENTEROCOLITIS AIDS [None]
  - EXTRAPYRAMIDAL DISORDER [None]
  - FATIGUE [None]
  - GENERAL PHYSICAL HEALTH DETERIORATION [None]
  - HEPATOMEGALY [None]
  - HYPERGLOBULINAEMIA [None]
  - LEUKOCYTOSIS [None]
  - MALABSORPTION [None]
  - MONOPLEGIA [None]
  - NIGHT SWEATS [None]
  - POLYNEUROPATHY [None]
  - SPLENOMEGALY [None]
  - STEATORRHOEA [None]
  - SYSTEMIC INFLAMMATORY RESPONSE SYNDROME [None]
  - TOXOPLASMOSIS [None]
  - WEIGHT DECREASED [None]
  - WHITE BLOOD CELL COUNT INCREASED [None]
